FAERS Safety Report 6597622-9 (Version None)
Quarter: 2010Q1

REPORT INFORMATION
  Report Type: 
  Country: None (occurrence: None)
  Receive Date: 20100219
  Receipt Date: 20100219
  Transmission Date: 20100710
  Serious: Yes (Life-Threatening)
  Sender: FDA-Public Use
  Company Number: None

PATIENT
  Sex: Female

DRUGS (1)
  1. ZOFRAN [Suspect]
     Dosage: IV BOLUS
     Route: 040

REACTIONS (2)
  - BRONCHOSPASM [None]
  - URTICARIA [None]
